FAERS Safety Report 22347276 (Version 1)
Quarter: 2023Q2

REPORT INFORMATION
  Report Type: Spontaneous
  Country: AT (occurrence: AT)
  Receive Date: 20230521
  Receipt Date: 20230521
  Transmission Date: 20230722
  Serious: Yes (Hospitalization, Other)
  Sender: FDA-Public Use
  Company Number: AT-009507513-2305AUT006019

PATIENT
  Sex: Female

DRUGS (6)
  1. JANUVIA [Suspect]
     Active Substance: SITAGLIPTIN PHOSPHATE
     Indication: Diabetes mellitus
     Dosage: 100 MILLIGRAM, QD
     Route: 048
     Dates: end: 202302
  2. SITAGLIPTIN [Suspect]
     Active Substance: SITAGLIPTIN
     Indication: Diabetes mellitus
     Dates: start: 202302
  3. BISOPROLOL FUMARATE [Concomitant]
     Active Substance: BISOPROLOL FUMARATE
     Dosage: 5 MILLIGRAM (1-0-0.5)
  4. EDOXABAN TOSYLATE [Concomitant]
     Active Substance: EDOXABAN TOSYLATE
     Dosage: 60 MILLIGRAM
  5. LEVOTHYROXINE SODIUM [Concomitant]
     Active Substance: LEVOTHYROXINE SODIUM
     Indication: Thyroid therapy
     Dosage: 125 +160 4 DAYS ALTERNATELY
  6. BEZAFIBRATE [Concomitant]
     Active Substance: BEZAFIBRATE
     Indication: Blood cholesterol
     Dosage: 400 MILLIGRAM (0-0-1)

REACTIONS (2)
  - Atrial fibrillation [Not Recovered/Not Resolved]
  - Cardiac ablation [Unknown]

NARRATIVE: CASE EVENT DATE: 20220101
